FAERS Safety Report 6348803-0 (Version None)
Quarter: 2009Q3

REPORT INFORMATION
  Report Type: 
  Country: None (occurrence: None)
  Receive Date: 20090911
  Receipt Date: 20090901
  Transmission Date: 20100115
  Serious: Yes (Life-Threatening, Hospitalization)
  Sender: FDA-Public Use
  Company Number: FR-AMGEN-US363394

PATIENT
  Age: 34 Month
  Sex: Female

DRUGS (1)
  1. ENBREL [Suspect]
     Indication: JUVENILE ARTHRITIS
     Route: 058
     Dates: start: 20090301, end: 20090701

REACTIONS (8)
  - ARACHNOIDITIS [None]
  - ASPARTATE AMINOTRANSFERASE INCREASED [None]
  - HERPES VIRUS INFECTION [None]
  - MYELITIS [None]
  - MYOCLONUS [None]
  - RHINITIS [None]
  - STATUS EPILEPTICUS [None]
  - VOMITING [None]
